FAERS Safety Report 13077519 (Version 1)
Quarter: 2016Q4

REPORT INFORMATION
  Report Type: Report from Study
  Country: BR (occurrence: BR)
  Receive Date: 20161231
  Receipt Date: 20161231
  Transmission Date: 20170207
  Serious: Yes (Hospitalization)
  Sender: FDA-Public Use
  Company Number: BR-HETERO LABS LTD-1061421

PATIENT
  Sex: Female
  Weight: 1.5 kg

DRUGS (1)
  1. EFAVIRENZ\ LAMIVUDINE \ TENOFOVIR  DISOPROXIL FUMARATE [Suspect]
     Active Substance: EFAVIRENZ\LAMIVUDINE\TENOFOVIR
     Indication: HIV INFECTION
     Route: 064
     Dates: start: 20160831

REACTIONS (2)
  - Foetal exposure during pregnancy [Unknown]
  - Weight increased [Unknown]
